FAERS Safety Report 12311041 (Version 1)
Quarter: 2016Q2

REPORT INFORMATION
  Report Type: Spontaneous
  Country: US (occurrence: US)
  Receive Date: 20160427
  Receipt Date: 20160427
  Transmission Date: 20160815
  Serious: No
  Sender: FDA-Public Use
  Company Number: US-B.I. PHARMACEUTICALS,INC./RIDGEFIELD-2016-BI-20548BI

PATIENT

DRUGS (1)
  1. MIRAPEX [Suspect]
     Active Substance: PRAMIPEXOLE DIHYDROCHLORIDE
     Indication: RESTLESS LEGS SYNDROME
     Dosage: STRENGTH: 1 MG
     Route: 065
     Dates: start: 2011, end: 201509

REACTIONS (3)
  - Withdrawal syndrome [Unknown]
  - Gambling disorder [Recovered/Resolved]
  - Obsessive-compulsive disorder [Recovered/Resolved]
